FAERS Safety Report 17137970 (Version 1)
Quarter: 2019Q4

REPORT INFORMATION
  Report Type: Spontaneous
  Country: US (occurrence: US)
  Receive Date: 20191211
  Receipt Date: 20191211
  Transmission Date: 20200122
  Serious: No
  Sender: FDA-Public Use
  Company Number: US-ALK-ABELLO A/S-2019AA003724

PATIENT

DRUGS (2)
  1. HISTATROL 0.1MG/ML (INTRADERMAL) [Suspect]
     Active Substance: HISTAMINE PHOSPHATE
     Dosage: UNK
     Route: 023
  2. HISTATROL 0.1MG/ML (INTRADERMAL) [Suspect]
     Active Substance: HISTAMINE PHOSPHATE
     Indication: PRODUCT USED FOR UNKNOWN INDICATION
     Route: 023

REACTIONS (1)
  - False negative investigation result [Unknown]
